FAERS Safety Report 6435212-9 (Version None)
Quarter: 2009Q4

REPORT INFORMATION
  Report Type: 
  Country: None (occurrence: None)
  Receive Date: 20091110
  Receipt Date: 20091013
  Transmission Date: 20100525
  Serious: Yes (Disabling)
  Sender: FDA-Public Use
  Company Number: US-WYE-H12002509

PATIENT
  Sex: Female

DRUGS (1)
  1. RAPAMUNE [Suspect]
     Dosage: UNSPECIFIED
     Route: 055
     Dates: start: 20020101

REACTIONS (7)
  - ACCIDENTAL EXPOSURE [None]
  - ANXIETY [None]
  - DEPRESSION [None]
  - EPISTAXIS [None]
  - HEPATIC CIRRHOSIS [None]
  - SPLENIC VARICES [None]
  - SPLENOMEGALY [None]
